FAERS Safety Report 14025591 (Version 2)
Quarter: 2025Q3

REPORT INFORMATION
  Report Type: Spontaneous
  Country: TW (occurrence: TW)
  Receive Date: 20170929
  Receipt Date: 20250814
  Transmission Date: 20251021
  Serious: Yes (Other)
  Sender: MERCK SHARP & DOHME LLC
  Company Number: TW-009507513-1709TWN009619

PATIENT
  Age: 63 Year
  Sex: Female

DRUGS (1)
  1. CASPOFUNGIN ACETATE [Suspect]
     Active Substance: CASPOFUNGIN ACETATE
     Indication: Endocarditis candida
     Dates: start: 20150728

REACTIONS (1)
  - Drug ineffective [Unknown]

NARRATIVE: CASE EVENT DATE: 20150728
